FAERS Safety Report 7091743-2 (Version None)
Quarter: 2010Q4

REPORT INFORMATION
  Report Type: 
  Country: None (occurrence: None)
  Receive Date: 20101109
  Receipt Date: 20101028
  Transmission Date: 20110411
  Serious: Yes (Hospitalization)
  Sender: FDA-Public Use
  Company Number: US-WATSON-2010-14468

PATIENT
  Age: 28 Year
  Sex: Female

DRUGS (2)
  1. CITALOPRAM HYDROBROMIDE [Suspect]
     Indication: DEPRESSION
     Dosage: 1.5 MG, SINGLE
     Route: 048
  2. SCOPOLAMINE [Suspect]
     Indication: PROCEDURAL NAUSEA
     Dosage: UNK
     Route: 062

REACTIONS (2)
  - ANTICHOLINERGIC SYNDROME [None]
  - DRUG INTERACTION [None]
